APPROVED DRUG PRODUCT: CHLOROTHIAZIDE
Active Ingredient: CHLOROTHIAZIDE
Strength: 250MG
Dosage Form/Route: TABLET;ORAL
Application: A085569 | Product #001
Applicant: ABC HOLDING CORP
Approved: Approved Prior to Jan 1, 1982 | RLD: No | RS: No | Type: DISCN